FAERS Safety Report 5128771-X (Version None)
Quarter: 2006Q4

REPORT INFORMATION
  Report Type: 
  Country: None (occurrence: None)
  Receive Date: 20061017
  Receipt Date: 20061006
  Transmission Date: 20070319
  Serious: Yes (Other)
  Sender: FDA-Public Use
  Company Number: DE-BRISTOL-MYERS SQUIBB COMPANY-13535901

PATIENT
  Age: 77 Year
  Sex: Female
  Weight: 85 kg

DRUGS (2)
  1. KARVEZIDE TABS 300MG/12.5MG [Suspect]
     Indication: HYPERTENSION
     Dates: start: 20050901
  2. MOBIC [Suspect]
     Indication: INTERVERTEBRAL DISC DISORDER

REACTIONS (1)
  - ARTERIOSCLEROSIS [None]
